FAERS Safety Report 16280853 (Version 1)
Quarter: 2019Q2

REPORT INFORMATION
  Report Type: Other
  Country: US (occurrence: US)
  Receive Date: 20190507
  Receipt Date: 20190507
  Transmission Date: 20190711
  Serious: Yes (Hospitalization)
  Sender: FDA-Public Use
  Company Number: US-INTERCEPT-PM2019000569

PATIENT
  Sex: Female

DRUGS (2)
  1. OCALIVA [Suspect]
     Active Substance: OBETICHOLIC ACID
     Indication: PRIMARY BILIARY CHOLANGITIS
  2. OCALIVA [Suspect]
     Active Substance: OBETICHOLIC ACID
     Indication: HEPATITIS C
     Dosage: 5 MG, QD
     Route: 048
     Dates: start: 20171108

REACTIONS (2)
  - Emergency care [Unknown]
  - Hospitalisation [Unknown]
